FAERS Safety Report 9805648 (Version 1)
Quarter: 2014Q1

REPORT INFORMATION
  Report Type: Spontaneous
  Country: US (occurrence: US)
  Receive Date: 20140109
  Receipt Date: 20140109
  Transmission Date: 20141002
  Serious: No
  Sender: FDA-Public Use
  Company Number: US-PFIZER INC-2014007108

PATIENT
  Age: 41 Year
  Sex: Female
  Weight: 77.1 kg

DRUGS (3)
  1. LYRICA [Suspect]
     Indication: FIBROMYALGIA
     Dosage: 75 MG, 1X/DAY
     Route: 048
     Dates: start: 20131211
  2. CELEBREX [Concomitant]
     Dosage: UNK, 1X/DAY
  3. TRAZODONE [Concomitant]
     Dosage: UNK, 1X/DAY

REACTIONS (3)
  - Limb discomfort [Unknown]
  - Local swelling [Unknown]
  - Peripheral coldness [Not Recovered/Not Resolved]
